FAERS Safety Report 4698895-X (Version None)
Quarter: 2005Q2

REPORT INFORMATION
  Report Type: 
  Country: None (occurrence: None)
  Receive Date: 20050624
  Receipt Date: 20050621
  Transmission Date: 20051028
  Serious: Yes (Life-Threatening, Disabling)
  Sender: FDA-Public Use
  Company Number: DE-BOEHRINGER INGELHEIM PHARMACEUTICALS, INC.-2005-DE-02372DE

PATIENT
  Sex: Male
  Weight: 65 kg

DRUGS (2)
  1. AGGRENOX [Suspect]
     Indication: THROMBOSIS PROPHYLAXIS
     Dosage: 200 MG DIPYRIDAMOLE + 25 MG ACETYLIC SALICYLIC ACID
     Route: 048
     Dates: start: 20041201
  2. SOTALOL HCL [Concomitant]
     Indication: ATRIAL FIBRILLATION

REACTIONS (1)
  - CEREBROVASCULAR ACCIDENT [None]
